FAERS Safety Report 8772532 (Version 2)
Quarter: 2012Q4

REPORT INFORMATION
  Report Type: Report from Study
  Country: US (occurrence: US)
  Receive Date: 20120905
  Receipt Date: 20120914
  Transmission Date: 20130627
  Serious: Yes (Hospitalization)
  Sender: FDA-Public Use
  Company Number: US-JNJFOC-20120814415

PATIENT
  Age: 17 Year
  Sex: Male
  Weight: 76.2 kg

DRUGS (3)
  1. REMICADE [Suspect]
     Indication: INFLAMMATORY BOWEL DISEASE
     Route: 042
     Dates: start: 20060218
  2. METAMUCIL [Concomitant]
  3. PROBIOTICS [Concomitant]

REACTIONS (1)
  - Intestinal anastomosis complication [Recovered/Resolved]
